FAERS Safety Report 5694102-X (Version None)
Quarter: 2008Q2

REPORT INFORMATION
  Report Type: 
  Country: None (occurrence: None)
  Receive Date: 20080402
  Receipt Date: 20080320
  Transmission Date: 20081010
  Serious: Yes (Hospitalization)
  Sender: FDA-Public Use
  Company Number: 2008SP000536

PATIENT
  Age: 80 Year
  Sex: Female

DRUGS (9)
  1. XOPENEX [Suspect]
     Indication: BRONCHITIS
     Dosage: 1.25 MG/3ML;Q4H;INHALATION
     Route: 055
     Dates: start: 20071203
  2. CRESTOR [Concomitant]
  3. ZETIA [Concomitant]
  4. FOSAMAX [Concomitant]
  5. COZAAR [Concomitant]
  6. SYNTHROID [Concomitant]
  7. ALLEGRA [Concomitant]
  8. ALBUTEROL [Concomitant]
  9. ATROVENT [Concomitant]

REACTIONS (8)
  - ASTHMA [None]
  - BRONCHITIS [None]
  - DYSSTASIA [None]
  - INSOMNIA [None]
  - NO THERAPEUTIC RESPONSE [None]
  - PAIN IN EXTREMITY [None]
  - PNEUMONIA [None]
  - RESPIRATORY DISTRESS [None]
